FAERS Safety Report 8230212-0 (Version None)
Quarter: 2012Q1

REPORT INFORMATION
  Report Type: 
  Country: None (occurrence: None)
  Receive Date: 20120321
  Receipt Date: 20120321
  Transmission Date: 20120608
  Serious: No
  Sender: FDA-Public Use
  Company Number: None

PATIENT
  Age: 67 Year
  Sex: Male
  Weight: 47.7 kg

DRUGS (1)
  1. MORPHINE [Suspect]
     Dosage: 15 MG OTHER PO
     Route: 048
     Dates: start: 20110903, end: 20110906

REACTIONS (2)
  - SOMNOLENCE [None]
  - MIOSIS [None]
